FAERS Safety Report 19500946 (Version 1)
Quarter: 2021Q3

REPORT INFORMATION
  Report Type: Spontaneous
  Country: FR (occurrence: FR)
  Receive Date: 20210707
  Receipt Date: 20210707
  Transmission Date: 20211014
  Serious: Yes (Hospitalization, Other)
  Sender: FDA-Public Use
  Company Number: FR-BRISTOL-MYERS SQUIBB COMPANY-BMS-2021-063935

PATIENT
  Age: 68 Year
  Sex: Male

DRUGS (8)
  1. ATORVASTATINE [Concomitant]
     Active Substance: ATORVASTATIN
     Indication: DYSLIPIDAEMIA
     Route: 065
     Dates: end: 20210522
  2. LACOSAMIDE. [Suspect]
     Active Substance: LACOSAMIDE
     Indication: EPILEPSY
     Dosage: 100 MG BID ^2/JOUR^
     Route: 048
     Dates: start: 20150501
  3. ELIQUIS [Suspect]
     Active Substance: APIXABAN
     Indication: THROMBOSIS PROPHYLAXIS
     Dosage: 2.5 MILLIGRAM, BID
     Route: 065
     Dates: start: 20201101, end: 20210522
  4. HYDROCORTISONE. [Concomitant]
     Active Substance: HYDROCORTISONE
     Indication: CUSHING^S SYNDROME
     Dosage: 2 DOSAGE FORM PER DAY ^2/JOUR^
     Route: 048
  5. ECONAZOLE. [Concomitant]
     Active Substance: ECONAZOLE NITRATE
     Indication: FUNGAL INFECTION
     Dosage: UNK
     Route: 003
  6. PARACETAMOL [Concomitant]
     Active Substance: ACETAMINOPHEN
     Indication: PAIN
     Dosage: 2 DOSAGE FORM PER DAY ^2/JOUR^
     Route: 048
  7. CHLORHYDRATE DE NICARDIPINE [Suspect]
     Active Substance: NICARDIPINE HYDROCHLORIDE
     Indication: HYPERTENSION
     Dosage: 20 MG PER DAY ^1/JOUR^
     Route: 048
     Dates: start: 20150101
  8. VENLAFAXINE [Concomitant]
     Active Substance: VENLAFAXINE HYDROCHLORIDE
     Indication: DEPRESSION
     Dosage: 1 DOSAGE FORM, QD
     Route: 048
     Dates: end: 20210522

REACTIONS (1)
  - Mixed liver injury [Recovering/Resolving]

NARRATIVE: CASE EVENT DATE: 20210519
